FAERS Safety Report 23086119 (Version 1)
Quarter: 2023Q4

REPORT INFORMATION
  Report Type: Report from Study
  Country: US (occurrence: US)
  Receive Date: 20231019
  Receipt Date: 20231019
  Transmission Date: 20240110
  Serious: Yes (Hospitalization, Other)
  Sender: FDA-Public Use
  Company Number: US-JAZZ PHARMACEUTICALS-2023-US-019470

PATIENT
  Age: 34 Year
  Sex: Female

DRUGS (15)
  1. XYREM [Suspect]
     Active Substance: SODIUM OXYBATE
     Indication: Narcolepsy
     Route: 048
     Dates: start: 20130828
  2. XYREM [Suspect]
     Active Substance: SODIUM OXYBATE
     Indication: Cataplexy
  3. XYREM [Suspect]
     Active Substance: SODIUM OXYBATE
     Indication: Somnolence
  4. RITALIN [Concomitant]
     Active Substance: METHYLPHENIDATE HYDROCHLORIDE
     Indication: Product used for unknown indication
     Dosage: UNK
     Dates: start: 20150603
  5. B COMPLEX B12 [Concomitant]
     Indication: Product used for unknown indication
     Dosage: UNK
     Dates: start: 20150602
  6. ZYRTEC [Concomitant]
     Active Substance: CETIRIZINE HYDROCHLORIDE
     Indication: Product used for unknown indication
  7. DIETARY SUPPLEMENT\PROBIOTICS [Concomitant]
     Active Substance: DIETARY SUPPLEMENT\PROBIOTICS NOS
     Indication: Product used for unknown indication
  8. THERAGRAN [VITAMINS NOS] [Concomitant]
     Indication: Product used for unknown indication
  9. EFFEXOR [Concomitant]
     Active Substance: VENLAFAXINE HYDROCHLORIDE
     Indication: Product used for unknown indication
  10. MAGNESIUM OXIDE [Concomitant]
     Active Substance: MAGNESIUM OXIDE
     Indication: Product used for unknown indication
     Dosage: UNK
     Dates: start: 20230901
  11. VITAMIN D3 [Concomitant]
     Active Substance: CHOLECALCIFEROL
     Indication: Product used for unknown indication
     Dosage: 0000
     Dates: start: 20230901
  12. FOLIC ACID [Concomitant]
     Active Substance: FOLIC ACID
     Indication: Product used for unknown indication
     Dosage: 0000
     Dates: start: 20230901
  13. GLUCOSAMINE + CHONDROITIN [CHONDROITIN SULFATE SODIUM;GLUCOSAMINE HYDR [Concomitant]
     Indication: Product used for unknown indication
     Dosage: UNK
     Dates: start: 20230905
  14. VENOFER [Concomitant]
     Active Substance: IRON SUCROSE
     Indication: Product used for unknown indication
     Dosage: 0000
     Dates: start: 20180101
  15. ALCOHOL [Concomitant]
     Active Substance: ALCOHOL
     Indication: Product used for unknown indication
     Dosage: 0000
     Dates: start: 20230925

REACTIONS (16)
  - Impaired gastric emptying [Unknown]
  - COVID-19 [Unknown]
  - Spinal operation [Unknown]
  - Iron metabolism disorder [Unknown]
  - Iron deficiency [Unknown]
  - White coat hypertension [Unknown]
  - Labile blood pressure [Unknown]
  - Hyperlipidaemia [Unknown]
  - Back pain [Unknown]
  - Pain in extremity [Recovered/Resolved]
  - Hyperhidrosis [Unknown]
  - Vomiting [Unknown]
  - Nausea [Unknown]
  - Depression [Unknown]
  - Osteoarthritis [Unknown]
  - Nerve compression [Unknown]

NARRATIVE: CASE EVENT DATE: 20190101
